FAERS Safety Report 4325826-4 (Version None)
Quarter: 2004Q1

REPORT INFORMATION
  Report Type: 
  Country: None (occurrence: None)
  Receive Date: 20040324
  Receipt Date: 20040302
  Transmission Date: 20041129
  Serious: Yes (Hospitalization, Other)
  Sender: FDA-Public Use
  Company Number: DE_040313118

PATIENT
  Age: 70 Year
  Sex: Female
  Weight: 55 kg

DRUGS (5)
  1. HUMULIN N [Suspect]
     Indication: DIABETES MELLITUS NON-INSULIN-DEPENDENT
     Dates: start: 20020101, end: 20030824
  2. METOPROLOL SUCCINATE [Concomitant]
  3. CAPTOPRIL ^STADA^ (CAPTOPRIL) [Concomitant]
  4. ASPIRIN [Concomitant]
  5. NOVONORM (REPAGLINIDE) [Concomitant]

REACTIONS (7)
  - AMNESIA [None]
  - CARDIAC DISORDER [None]
  - COMA [None]
  - HYPOGLYCAEMIA [None]
  - HYPOTENSION [None]
  - MEDICATION ERROR [None]
  - SYNCOPE [None]
